FAERS Safety Report 11596411 (Version 1)
Quarter: 2015Q4

REPORT INFORMATION
  Report Type: Spontaneous
  Country: KR (occurrence: KR)
  Receive Date: 20151006
  Receipt Date: 20151006
  Transmission Date: 20160304
  Serious: Yes (Death, Other)
  Sender: FDA-Public Use
  Company Number: KR-GLAXOSMITHKLINE-KR2013GSK000346

PATIENT
  Sex: Male
  Weight: 44.7 kg

DRUGS (5)
  1. ADVANTAN CREAM [Concomitant]
     Indication: RASH
     Dosage: 15 G, PRN
     Dates: start: 20130816
  2. BACTROBAN [Concomitant]
     Active Substance: MUPIROCIN\MUPIROCIN CALCIUM
     Indication: RASH
     Dosage: 10 G, PRN
     Dates: start: 20130816
  3. VOTRIENT [Suspect]
     Active Substance: PAZOPANIB HYDROCHLORIDE
     Indication: RENAL CELL CARCINOMA
     Dosage: 800 MG, 1D
     Dates: start: 20130808, end: 20130816
  4. LACTICARE-HC [Concomitant]
     Indication: RASH
     Dosage: 60 ML, PRN
     Dates: start: 20130816
  5. MAGMIL [Concomitant]
     Active Substance: MAGNESIUM HYDROXIDE
     Indication: CONSTIPATION PROPHYLAXIS
     Dosage: 1.5 T, TID
     Route: 048
     Dates: start: 20130815

REACTIONS (1)
  - Death [Fatal]
